FAERS Safety Report 6644927-9 (Version None)
Quarter: 2010Q1

REPORT INFORMATION
  Report Type: 
  Country: None (occurrence: None)
  Receive Date: 20100322
  Receipt Date: 20100309
  Transmission Date: 20100710
  Serious: Yes (Other)
  Sender: FDA-Public Use
  Company Number: PHHY2010US14454

PATIENT
  Sex: Male

DRUGS (9)
  1. ZOMETA [Suspect]
     Dosage: 4 MG/ 5 ML
  2. REVLIMID [Suspect]
     Indication: MULTIPLE MYELOMA
     Dosage: 25 MG (DAILY X 3 WEEKS)
     Route: 048
     Dates: start: 20090423
  3. DEXAMETHASONE [Concomitant]
  4. ASPIRIN [Concomitant]
     Dosage: 81 MG DAILY
  5. QUININE [Concomitant]
     Dosage: 200 MG DAILY
  6. METFORMIN HYDROCHLORIDE [Concomitant]
     Dosage: 1000 MG DAILY
  7. GLIMEPIRIDE [Concomitant]
     Dosage: 1 MG DAILY
  8. OXYCONTIN [Concomitant]
  9. PERCOCET [Concomitant]

REACTIONS (1)
  - OSTEONECROSIS [None]
